FAERS Safety Report 14603229 (Version 1)
Quarter: 2018Q1

REPORT INFORMATION
  Report Type: Spontaneous
  Country: US (occurrence: US)
  Receive Date: 20180306
  Receipt Date: 20180306
  Transmission Date: 20180509
  Serious: Yes (Death)
  Sender: FDA-Public Use
  Company Number: US-SA-2018SA060799

PATIENT
  Age: 57 Year
  Sex: Male

DRUGS (2)
  1. LANTUS SOLOSTAR [Suspect]
     Active Substance: INSULIN GLARGINE
     Dosage: DOSE:20 UNIT(S)
     Route: 051
     Dates: end: 20180225
  2. SOLOSTAR [Suspect]
     Active Substance: DEVICE
     Dates: end: 20180225

REACTIONS (1)
  - Myocardial infarction [Fatal]

NARRATIVE: CASE EVENT DATE: 20180225
